FAERS Safety Report 15152669 (Version 3)
Quarter: 2020Q2

REPORT INFORMATION
  Report Type: Spontaneous
  Country: FR (occurrence: FR)
  Receive Date: 20180717
  Receipt Date: 20200608
  Transmission Date: 20200713
  Serious: Yes (Hospitalization)
  Sender: FDA-Public Use
  Company Number: FR-TEVA-2018-FR-924011

PATIENT
  Age: 100 Year
  Sex: Female
  Weight: 73 kg

DRUGS (23)
  1. ESIDREX [Suspect]
     Active Substance: HYDROCHLOROTHIAZIDE
     Dosage: 25.0MG ONCE/SINGLE ADMINISTRATION
     Route: 048
     Dates: start: 20170628, end: 20170628
  2. ADANCOR [Suspect]
     Active Substance: NICORANDIL
     Dosage: 10 MILLIGRAM DAILY; 10.0MG ONCE/SINGLE ADMINISTRATION
     Route: 048
     Dates: start: 20170628, end: 20170628
  3. SKENAN [Concomitant]
     Active Substance: MORPHINE SULFATE
     Dosage: 1 DOSAGE FORMS DAILY;  (EVENING)
     Route: 065
  4. XANAX [Concomitant]
     Active Substance: ALPRAZOLAM
     Dosage: 1 MORNING, 1 NOON, 2 EVENING
     Route: 065
     Dates: start: 20170628
  5. SPIRONOLACTONE. [Concomitant]
     Active Substance: SPIRONOLACTONE
     Indication: PRODUCT USED FOR UNKNOWN INDICATION
     Dosage: 2 DOSAGE FORMS DAILY; THERAPY START DATE AND THERAPY END DATE : ASKED BUT UNKNOWN
     Route: 065
  6. NOVONORM [Suspect]
     Active Substance: REPAGLINIDE
     Dosage: 1.0MG ONCE/SINGLE ADMINISTRATION
     Route: 048
     Dates: start: 20170628, end: 20170628
  7. ALDACTONE [Concomitant]
     Active Substance: SPIRONOLACTONE
     Dosage: 2 DOSAGE FORMS DAILY;
     Route: 065
  8. DUROGESIC [Concomitant]
     Active Substance: FENTANYL
     Dosage: 1 PATCH PER 72 HOURS
     Route: 065
  9. PARACETAMOL [Concomitant]
     Active Substance: ACETAMINOPHEN
     Dosage: 2 DOSAGE FORMS DAILY;
  10. AMLOR [Suspect]
     Active Substance: AMLODIPINE BESYLATE
     Indication: PRODUCT USED FOR UNKNOWN INDICATION
     Dosage: 10.0MG ONCE/SINGLE ADMINISTRATION
     Route: 048
     Dates: start: 20170628, end: 20170628
  11. PARACETAMOL [Concomitant]
     Active Substance: ACETAMINOPHEN
     Route: 065
  12. SPIRONOLACTONE. [Suspect]
     Active Substance: SPIRONOLACTONE
     Dosage: 1 DF, SINGLE
     Route: 048
     Dates: start: 20170628, end: 20170628
  13. AMIODARONE [Suspect]
     Active Substance: AMIODARONE
     Indication: ATRIAL FIBRILLATION
     Dosage: 200 MILLIGRAM DAILY;  (MORNING)
     Route: 048
     Dates: start: 20170628
  14. NAFTIDROFURYL [Concomitant]
     Active Substance: NAFRONYL
     Dosage: 200 MG, UNK
     Route: 065
     Dates: start: 20170628
  15. LASILIX [Concomitant]
     Active Substance: FUROSEMIDE
     Route: 065
  16. PERINDOPRIL [Suspect]
     Active Substance: PERINDOPRIL
     Dosage: 8.0MG ONCE/SINGLE ADMINISTRATION
     Route: 048
     Dates: start: 20170628, end: 20170628
  17. FORLAX [Concomitant]
     Active Substance: POLYETHYLENE GLYCOL 4000
     Dosage: 1 DOSAGE FORMS DAILY;  (MORNING)
     Route: 065
  18. LEVOTHYROX [Concomitant]
     Active Substance: LEVOTHYROXINE
     Dosage: 1 DOSAGE FORMS DAILY;  (MORNING)
     Route: 065
     Dates: start: 20080101
  19. CARDENSIEL [Concomitant]
     Active Substance: BISOPROLOL FUMARATE
     Dosage: (MORNING)
     Route: 065
  20. ATENOLOL. [Suspect]
     Active Substance: ATENOLOL
     Indication: PRODUCT USED FOR UNKNOWN INDICATION
     Dosage: SINGLE
     Route: 048
     Dates: start: 20170628, end: 20170628
  21. LASILIX [Concomitant]
     Active Substance: FUROSEMIDE
     Dosage: 6 DOSAGE FORMS DAILY;
     Route: 065
  22. ALDACTONE [Concomitant]
     Active Substance: SPIRONOLACTONE
     Dosage: 1 DOSAGE FORMS
     Route: 065
  23. FENTANYL. [Concomitant]
     Active Substance: FENTANYL
     Indication: PRODUCT USED FOR UNKNOWN INDICATION
     Dosage: THERAPY START DATE AND THERAPY END DATE : ASKED BUT UNKNOWN?1 PATCH PER 72 HOURS
     Route: 065

REACTIONS (6)
  - Hypoglycaemia [Recovered/Resolved]
  - Bradycardia [Recovered/Resolved]
  - Hypotension [Recovered/Resolved]
  - Coma scale abnormal [Unknown]
  - Acute kidney injury [Recovered/Resolved]
  - Wrong patient received product [Unknown]

NARRATIVE: CASE EVENT DATE: 20170628
